FAERS Safety Report 6276984-6 (Version None)
Quarter: 2009Q3

REPORT INFORMATION
  Report Type: 
  Country: None (occurrence: None)
  Receive Date: 20090722
  Receipt Date: 20081111
  Transmission Date: 20100115
  Serious: No
  Sender: FDA-Public Use
  Company Number: US-BRISTOL-MYERS SQUIBB COMPANY-14402663

PATIENT
  Sex: Male

DRUGS (3)
  1. COUMADIN [Suspect]
  2. AMIODARONE HCL [Suspect]
  3. WINE [Suspect]
     Dosage: 1 DOSAGEFORM = 1 GLASS WITH DINNER

REACTIONS (1)
  - INTERNATIONAL NORMALISED RATIO INCREASED [None]
